FAERS Safety Report 18177690 (Version 1)
Quarter: 2020Q3

REPORT INFORMATION
  Report Type: Spontaneous
  Country: DE (occurrence: DE)
  Receive Date: 20200821
  Receipt Date: 20200821
  Transmission Date: 20201103
  Serious: Yes (Hospitalization)
  Sender: FDA-Public Use
  Company Number: DE-TEVA-2020-DE-1815683

PATIENT
  Age: 36 Year
  Sex: Male

DRUGS (1)
  1. ACICLOVIR [Suspect]
     Active Substance: ACYCLOVIR
     Dosage: 2400 MILLIGRAM DAILY;
     Route: 048

REACTIONS (3)
  - Eye pain [Unknown]
  - Rash [Unknown]
  - Prescribed underdose [Unknown]
